FAERS Safety Report 5809127-0 (Version None)
Quarter: 2008Q3

REPORT INFORMATION
  Report Type: 
  Country: None (occurrence: None)
  Receive Date: 20080714
  Receipt Date: 20080702
  Transmission Date: 20090109
  Serious: Yes (Hospitalization, Other)
  Sender: FDA-Public Use
  Company Number: US-PFIZER INC-2008042954

PATIENT
  Sex: Female
  Weight: 67.1 kg

DRUGS (10)
  1. CHANTIX [Suspect]
     Indication: SMOKING CESSATION THERAPY
     Dates: start: 20080201, end: 20080401
  2. HYZAAR [Concomitant]
  3. PRAVASTATIN [Concomitant]
  4. ARMOUR THYROID [Concomitant]
  5. SPIRIVA [Concomitant]
  6. NEUTRA-PHOS [Concomitant]
  7. ACETYLSALICYLIC ACID SRT [Concomitant]
  8. MULTI-VITAMINS [Concomitant]
  9. ALBUTEROL [Concomitant]
     Indication: SEASONAL ALLERGY
  10. CLARITIN [Concomitant]
     Indication: SEASONAL ALLERGY

REACTIONS (2)
  - DYSPNOEA [None]
  - OXYGEN SATURATION DECREASED [None]
